FAERS Safety Report 5112483-2 (Version None)
Quarter: 2006Q3

REPORT INFORMATION
  Report Type: 
  Country: None (occurrence: None)
  Receive Date: 20060919
  Receipt Date: 20060907
  Transmission Date: 20061208
  Serious: Yes (Hospitalization)
  Sender: FDA-Public Use
  Company Number: 2006109338

PATIENT
  Age: 38 Year
  Sex: Male

DRUGS (9)
  1. ATARAX [Suspect]
     Indication: PRURITUS
     Dosage: 75 MG, ORAL
     Route: 048
     Dates: start: 20060905, end: 20060906
  2. HALCION [Suspect]
     Indication: INSOMNIA
     Dosage: ORAL
     Route: 048
     Dates: end: 20060904
  3. BETAMETHASONE [Concomitant]
  4. ALLEGRA [Concomitant]
  5. LIVALO (ITAVASTATIN) [Concomitant]
  6. ALLELOCK (OLOPATADINE HYDROCHLORIDE) [Concomitant]
  7. ALLOPURINOL [Concomitant]
  8. ATELEC (CILNIDIPINE) [Concomitant]
  9. URALYT (ARNICA EXTRACT, CONVALLARIA GLYCOSIDES, ECHINACEA ANGUSTIFOLIA [Concomitant]

REACTIONS (9)
  - AMNESIA [None]
  - DERMATITIS [None]
  - GAIT DISTURBANCE [None]
  - HEADACHE [None]
  - HYPERACUSIS [None]
  - INSOMNIA [None]
  - MALAISE [None]
  - NAUSEA [None]
  - PRURITUS [None]
